FAERS Safety Report 8488862-2 (Version None)
Quarter: 2012Q2

REPORT INFORMATION
  Report Type: 
  Country: None (occurrence: None)
  Receive Date: 20120626
  Receipt Date: 20120615
  Transmission Date: 20120825
  Serious: Yes (Hospitalization, Other)
  Sender: FDA-Public Use
  Company Number: 2012SP008054

PATIENT
  Age: 34 Year
  Sex: Female
  Weight: 99.8 kg

DRUGS (7)
  1. LANSOPRAZOLE [Suspect]
     Indication: GASTROOESOPHAGEAL REFLUX PROPHYLAXIS
     Dosage: 30 MG;QD;PO
     Route: 048
     Dates: start: 20100907, end: 20100928
  2. TRANEXAMIC ACID [Suspect]
     Indication: PRODUCT USED FOR UNKNOWN INDICATION
     Dosage: 1 DF;QID;PO
     Route: 048
     Dates: start: 20100922, end: 20100928
  3. NPLATE [Suspect]
     Indication: IDIOPATHIC THROMBOCYTOPENIC PURPURA
     Dosage: 1 MG/KG;SC
     Route: 058
     Dates: start: 20100920, end: 20100920
  4. IMMUNE GLOBULIN (HUMAN) [Suspect]
     Indication: IDIOPATHIC THROMBOCYTOPENIC PURPURA
     Dosage: 1000 MG/KG;QD;IV
     Route: 042
     Dates: start: 20100922, end: 20100923
  5. NORETHINDRONE [Suspect]
     Indication: PRODUCT USED FOR UNKNOWN INDICATION
     Dosage: 5 MG;TID;PO
     Route: 048
     Dates: start: 20100922, end: 20100928
  6. DEXAMETHASONE [Suspect]
     Indication: ANTIEMETIC SUPPORTIVE CARE
     Dosage: PO
     Route: 048
     Dates: start: 20100907, end: 20100910
  7. RITUXIMAB (RITUXIMAB) [Suspect]
     Indication: PRODUCT USED FOR UNKNOWN INDICATION
     Dosage: 375 MG/M2;BIW;INDRP
     Route: 041
     Dates: start: 20100917, end: 20100924

REACTIONS (15)
  - HAEMORRHAGE [None]
  - VAGINAL HAEMORRHAGE [None]
  - HAEMOGLOBIN DECREASED [None]
  - RED BLOOD CELL COUNT DECREASED [None]
  - RECTAL HAEMORRHAGE [None]
  - IDIOPATHIC THROMBOCYTOPENIC PURPURA [None]
  - HAEMATOCRIT DECREASED [None]
  - RASH MACULO-PAPULAR [None]
  - NO THERAPEUTIC RESPONSE [None]
  - ORAL MUCOSAL BLISTERING [None]
  - DISEASE RECURRENCE [None]
  - ARTHRALGIA [None]
  - MELAENA [None]
  - REFUSAL OF TREATMENT BY PATIENT [None]
  - RASH ERYTHEMATOUS [None]
